FAERS Safety Report 18685454 (Version 1)
Quarter: 2020Q4

REPORT INFORMATION
  Report Type: Spontaneous
  Country: IT (occurrence: IT)
  Receive Date: 20201231
  Receipt Date: 20201231
  Transmission Date: 20210114
  Serious: Yes (Death, Other)
  Sender: FDA-Public Use
  Company Number: IT-SAMSUNG BIOEPIS-SB-2020-38156

PATIENT
  Age: 44 Year
  Sex: Female

DRUGS (11)
  1. THIOTEPA. [Concomitant]
     Active Substance: THIOTEPA
     Indication: BONE MARROW CONDITIONING REGIMEN
     Dosage: UNKNOWN
     Route: 065
  2. FLUDARABINE [Concomitant]
     Active Substance: FLUDARABINE PHOSPHATE
     Indication: BONE MARROW CONDITIONING REGIMEN
     Dosage: UNKNOWN
     Route: 065
  3. ETOPOSIDE. [Concomitant]
     Active Substance: ETOPOSIDE
     Indication: ACUTE MYELOID LEUKAEMIA
     Dosage: UNKNOWN (INDUCTION TREATMENT, TWO CYCLES)
     Route: 065
  4. ARA-C [Concomitant]
     Active Substance: CYTARABINE
     Indication: ACUTE MYELOID LEUKAEMIA
     Dosage: UNKNOWN (INDUCTION TREATMENT, TWO CYCLES, HIGH DOSAGE)
     Route: 065
  5. METHYLPREDNISOLONE. [Concomitant]
     Active Substance: METHYLPREDNISOLONE
     Indication: ACUTE GRAFT VERSUS HOST DISEASE
     Route: 042
  6. INFLIXIMAB [Suspect]
     Active Substance: INFLIXIMAB
     Indication: ACUTE GRAFT VERSUS HOST DISEASE
     Dosage: UNKNOWN
     Route: 065
  7. METHOTREXATE. [Concomitant]
     Active Substance: METHOTREXATE
     Indication: PROPHYLAXIS AGAINST GRAFT VERSUS HOST DISEASE
     Dosage: UNKNOWN
     Route: 065
  8. CARBOPLATIN. [Concomitant]
     Active Substance: CARBOPLATIN
     Indication: ACUTE MYELOID LEUKAEMIA
     Dosage: UNKNOWN (INDUCTION TREATMENT, TWO CYCLES)
     Route: 065
  9. IFOSFAMIDE. [Concomitant]
     Active Substance: IFOSFAMIDE
     Indication: ACUTE MYELOID LEUKAEMIA
     Dosage: UNKNOWN (INDUCTION TREATMENT, TWO CYCLES)
     Route: 065
  10. BUSULFAN. [Concomitant]
     Active Substance: BUSULFAN
     Indication: BONE MARROW CONDITIONING REGIMEN
     Dosage: UNKNOWN
     Route: 065
  11. CICLOSPORINE [Concomitant]
     Active Substance: CYCLOSPORINE
     Indication: PROPHYLAXIS AGAINST GRAFT VERSUS HOST DISEASE
     Dosage: UNKNOWN
     Route: 065

REACTIONS (8)
  - Chronic graft versus host disease [Unknown]
  - Off label use [Unknown]
  - Serositis [Unknown]
  - Death [Fatal]
  - Autoimmune myocarditis [Unknown]
  - Shock haemorrhagic [Unknown]
  - Drug ineffective for unapproved indication [Unknown]
  - Pleural effusion [Unknown]
